FAERS Safety Report 13041644 (Version 1)
Quarter: 2016Q4

REPORT INFORMATION
  Report Type: Spontaneous
  Country: US (occurrence: US)
  Receive Date: 20161219
  Receipt Date: 20161219
  Transmission Date: 20170207
  Serious: No
  Sender: FDA-Public Use
  Company Number: US-ROCHE-1423920

PATIENT
  Age: 41 Year
  Sex: Male

DRUGS (2)
  1. IL-2 [Concomitant]
     Active Substance: ALDESLEUKIN
  2. ZELBORAF [Suspect]
     Active Substance: VEMURAFENIB
     Indication: METASTATIC MALIGNANT MELANOMA
     Route: 065

REACTIONS (7)
  - Gingival swelling [Unknown]
  - Pruritus [Unknown]
  - Papilloma [Unknown]
  - Tremor [Unknown]
  - Eye pain [Unknown]
  - Headache [Unknown]
  - Rash [Unknown]
